FAERS Safety Report 10587534 (Version 2)
Quarter: 2014Q4

REPORT INFORMATION
  Report Type: Spontaneous
  Country: US (occurrence: US)
  Receive Date: 20141117
  Receipt Date: 20141201
  Transmission Date: 20150529
  Serious: Yes (Hospitalization, Other)
  Sender: FDA-Public Use
  Company Number: US-BAYER-2014-167854

PATIENT
  Age: 24 Year
  Sex: Female
  Weight: 45.35 kg

DRUGS (2)
  1. MIRENA [Suspect]
     Active Substance: LEVONORGESTREL
     Indication: CONTRACEPTION
     Dosage: 20 MCG/24HR, CONT
     Route: 015
     Dates: start: 200908, end: 201008
  2. ACYCLOVIR [ACICLOVIR SODIUM] [Concomitant]
     Indication: HERPES SIMPLEX
     Route: 048

REACTIONS (16)
  - Injury [None]
  - Fear [None]
  - Uterine perforation [None]
  - Depressed mood [None]
  - Depression [None]
  - Anxiety [None]
  - Off label use [None]
  - Device issue [None]
  - Gastrointestinal disorder [None]
  - Abdominal pain [None]
  - Genital haemorrhage [None]
  - Medical device discomfort [None]
  - Device breakage [None]
  - Pelvic pain [None]
  - Internal injury [None]
  - Emotional distress [None]

NARRATIVE: CASE EVENT DATE: 201007
